FAERS Safety Report 8800362 (Version 2)
Quarter: 2012Q4

REPORT INFORMATION
  Report Type: 
  Country: SA (occurrence: SA)
  Receive Date: 20120921
  Receipt Date: 20121004
  Transmission Date: 20130627
  Serious: Yes (Other)
  Sender: FDA-Public Use
  Company Number: PHHY2012SA080517

PATIENT
  Age: 50 Year
  Sex: Male
  Weight: 60 kg

DRUGS (1)
  1. TASIGNA [Suspect]
     Indication: CHRONIC MYELOID LEUKAEMIA
     Dosage: 400 mg, BID
     Route: 048
     Dates: start: 20120502, end: 20120522

REACTIONS (1)
  - Electrocardiogram QT prolonged [Recovered/Resolved]
